FAERS Safety Report 13138289 (Version 5)
Quarter: 2020Q2

REPORT INFORMATION
  Report Type: Spontaneous
  Country: US (occurrence: US)
  Receive Date: 20170123
  Receipt Date: 20200611
  Transmission Date: 20200713
  Serious: Yes (Hospitalization, Other)
  Sender: FDA-Public Use
  Company Number: US-UNITED THERAPEUTICS-UNT-2016-010407

PATIENT
  Age: 57 Year
  Sex: Female
  Weight: 77.1 kg

DRUGS (16)
  1. REMODULIN [Suspect]
     Active Substance: TREPROSTINIL
     Indication: PULMONARY ARTERIAL HYPERTENSION
     Dosage: 0.0225 ?G/KG, CONTINUING
     Route: 041
     Dates: start: 20160614
  2. REMODULIN [Suspect]
     Active Substance: TREPROSTINIL
     Dosage: 0.0205 ?G/KG, CONTINUING
     Route: 041
     Dates: start: 20150930
  3. ADEMPAS [Suspect]
     Active Substance: RIOCIGUAT
     Indication: PULMONARY ARTERIAL HYPERTENSION
     Dosage: UNK
     Route: 048
     Dates: start: 20160310
  4. COUMADIN [Concomitant]
     Active Substance: WARFARIN SODIUM
     Indication: MYOCARDIAL INFARCTION
     Dosage: 7.5 MG, TOTAL DAILY DOSE
     Route: 065
     Dates: start: 20151005, end: 20160727
  5. ULTRAM [Concomitant]
     Active Substance: TRAMADOL HYDROCHLORIDE
     Indication: PAIN PROPHYLAXIS
     Dosage: UNK, Q6H (PRN) (50 MG, TOTAL DAILY DOSE)
     Route: 048
     Dates: start: 20160215, end: 20160707
  6. AMBIEN [Concomitant]
     Active Substance: ZOLPIDEM TARTRATE
     Indication: INSOMNIA
     Dosage: 5 MG, TOTAL DAILY DOSE
     Route: 048
     Dates: start: 20160516
  7. MIRCERA [Concomitant]
     Active Substance: METHOXY POLYETHYLENE GLYCOL-EPOETIN BETA
     Indication: CHRONIC KIDNEY DISEASE
     Dosage: UNK, Q2WK (50 ?G, TOTAL DAILY DOSE)
     Route: 065
     Dates: start: 20151007
  8. METOPROLOL. [Concomitant]
     Active Substance: METOPROLOL
     Indication: CORONARY ARTERY DISEASE
     Dosage: 50 MG, TOTAL DAILY DOSE
     Route: 065
     Dates: start: 20150809, end: 20160626
  9. RENVELA [Concomitant]
     Active Substance: SEVELAMER CARBONATE
     Indication: DIALYSIS
     Dosage: 1600 MG, BID
     Route: 048
     Dates: start: 20150819
  10. SURFAK [Concomitant]
     Indication: CONSTIPATION PROPHYLAXIS
     Dosage: UNK, QOD (240 MG,  TOTAL DAILY DOSE)
     Route: 065
     Dates: start: 20150922, end: 20160626
  11. PEPCID [Concomitant]
     Active Substance: FAMOTIDINE
     Indication: PROPHYLAXIS
     Dosage: 20 MG, TOTAL DAILY DOSE
     Route: 065
     Dates: start: 20151005, end: 20160626
  12. SENSIPAR [Concomitant]
     Active Substance: CINACALCET HYDROCHLORIDE
     Indication: DIALYSIS
     Dosage: 180 MG, TOTAL DAILY DOSE
     Route: 048
     Dates: start: 2013
  13. XARELTO [Concomitant]
     Active Substance: RIVAROXABAN
     Indication: CORONARY ARTERY DISEASE
     Dosage: 20 MG, TOTAL DAILY DOSE
     Route: 065
     Dates: start: 20151201, end: 20160627
  14. REMODULIN [Suspect]
     Active Substance: TREPROSTINIL
     Dosage: 0.001 ?G/KG, CONTINUING
     Route: 041
     Dates: start: 20150922
  15. HECTOROL [Concomitant]
     Active Substance: DOXERCALCIFEROL
     Indication: DIALYSIS
     Dosage: UNK, (MON,WED,FRI) (3 ?G, TOTAL DAILY DOSE)
     Route: 042
     Dates: start: 20151007
  16. ADEMPAS [Suspect]
     Active Substance: RIOCIGUAT
     Dosage: 1 MG, TID
     Route: 048
     Dates: start: 20160311, end: 20160802

REACTIONS (1)
  - Acute respiratory failure [Recovered/Resolved]

NARRATIVE: CASE EVENT DATE: 20160627
